FAERS Safety Report 5325782-6 (Version None)
Quarter: 2007Q2

REPORT INFORMATION
  Report Type: 
  Country: None (occurrence: None)
  Receive Date: 20070510
  Receipt Date: 20070223
  Transmission Date: 20071010
  Serious: Yes (Hospitalization)
  Sender: FDA-Public Use
  Company Number: 155919ISR

PATIENT
  Age: 57 Year
  Sex: Male

DRUGS (6)
  1. CISPLATIN [Suspect]
     Indication: METASTATIC GASTRIC CANCER
     Dosage: SEE IMAGE
     Route: 041
     Dates: start: 20060220, end: 20060220
  2. CISPLATIN [Suspect]
     Indication: METASTATIC GASTRIC CANCER
     Dosage: SEE IMAGE
     Route: 041
     Dates: start: 20060123
  3. FLUOROURACIL [Suspect]
     Indication: METASTATIC GASTRIC CANCER
     Dosage: SEE IMAGE
     Route: 041
     Dates: start: 20060221, end: 20060221
  4. FLUOROURACIL [Suspect]
     Indication: METASTATIC GASTRIC CANCER
     Dosage: SEE IMAGE
     Route: 041
     Dates: start: 20060123
  5. ONDANSETRON [Concomitant]
  6. METHYLPREDNISOLONE 16MG TAB [Suspect]

REACTIONS (1)
  - PANCREATITIS ACUTE [None]
